FAERS Safety Report 26043066 (Version 1)
Quarter: 2025Q4

REPORT INFORMATION
  Report Type: Spontaneous
  Country: IN (occurrence: IN)
  Receive Date: 20251113
  Receipt Date: 20251113
  Transmission Date: 20260117
  Serious: Yes (Other)
  Sender: PFIZER
  Company Number: IN-PFIZER INC-PV202500131796

PATIENT
  Age: 52 Year
  Sex: Male

DRUGS (8)
  1. VORICONAZOLE [Interacting]
     Active Substance: VORICONAZOLE
     Indication: Meningitis fungal
     Dosage: UNK
  2. VORICONAZOLE [Interacting]
     Active Substance: VORICONAZOLE
     Indication: Iatrogenic infection
  3. VORICONAZOLE [Interacting]
     Active Substance: VORICONAZOLE
     Indication: Meningitis tuberculous
  4. AMPHOTERICIN B [Interacting]
     Active Substance: AMPHOTERICIN B
     Indication: Meningitis fungal
     Dosage: UNK
  5. AMPHOTERICIN B [Interacting]
     Active Substance: AMPHOTERICIN B
     Indication: Iatrogenic infection
  6. AMPHOTERICIN B [Interacting]
     Active Substance: AMPHOTERICIN B
     Indication: Meningitis tuberculous
  7. MEROPENEM [Concomitant]
     Active Substance: MEROPENEM
     Indication: Meningitis
     Dosage: 1 G, 4X/DAY (8 HOURLY)
     Route: 042
  8. VANCOMYCIN [Concomitant]
     Active Substance: VANCOMYCIN
     Indication: Meningitis
     Dosage: 1 G, 4X/DAY (8 HOURLY)
     Route: 042

REACTIONS (3)
  - Drug level decreased [Unknown]
  - Treatment failure [Unknown]
  - Drug interaction [Unknown]
